FAERS Safety Report 15882356 (Version 1)
Quarter: 2019Q1

REPORT INFORMATION
  Report Type: Spontaneous
  Country: DE (occurrence: DE)
  Receive Date: 20190129
  Receipt Date: 20190129
  Transmission Date: 20190417
  Serious: Yes (Hospitalization)
  Sender: FDA-Public Use
  Company Number: DE-AMGEN-DEUSP2019014083

PATIENT
  Age: 51 Year
  Sex: Male
  Weight: 72 kg

DRUGS (3)
  1. ESCITALOPRAM [Concomitant]
     Active Substance: ESCITALOPRAM OXALATE
     Indication: STRESS
     Dosage: UNK
     Route: 048
  2. L-THYROXIN [Concomitant]
     Active Substance: LEVOTHYROXINE SODIUM
     Indication: THYROIDECTOMY
     Dosage: UNK
     Route: 048
  3. PROCORALAN [Suspect]
     Active Substance: IVABRADINE
     Indication: TACHYARRHYTHMIA
     Dosage: 0.25 MG, UNK
     Route: 048
     Dates: start: 20181005, end: 20181020

REACTIONS (9)
  - Asthenia [Recovering/Resolving]
  - Blood pressure fluctuation [Recovering/Resolving]
  - Dyspnoea [Recovering/Resolving]
  - Myalgia [Recovering/Resolving]
  - Fatigue [Recovering/Resolving]
  - Blood thyroid stimulating hormone decreased [Recovering/Resolving]
  - Off label use [Unknown]
  - Hepatic enzyme increased [Recovering/Resolving]
  - Blood pressure decreased [Recovering/Resolving]

NARRATIVE: CASE EVENT DATE: 20181005
